FAERS Safety Report 25331164 (Version 1)
Quarter: 2025Q2

REPORT INFORMATION
  Report Type: Spontaneous
  Country: UG (occurrence: UG)
  Receive Date: 20250519
  Receipt Date: 20250519
  Transmission Date: 20250717
  Serious: Yes (Death, Hospitalization, Other)
  Sender: EPIC PHARM
  Company Number: UG-EPICPHARMA-UG-2025EPCLIT00564

PATIENT
  Age: 46 Year
  Sex: Male

DRUGS (5)
  1. EPIRUBICIN HYDROCHLORIDE [Suspect]
     Active Substance: EPIRUBICIN HYDROCHLORIDE
     Indication: Oesophageal adenocarcinoma stage III
     Route: 065
  2. CISPLATIN [Suspect]
     Active Substance: CISPLATIN
     Indication: Oesophageal adenocarcinoma stage III
     Route: 065
  3. TENOFOVIR DISOPROXIL [Concomitant]
     Active Substance: TENOFOVIR DISOPROXIL
     Indication: HIV infection
     Route: 065
  4. LAMIVUDINE [Concomitant]
     Active Substance: LAMIVUDINE
     Indication: HIV infection
     Route: 065
  5. DOLUTEGRAVIR [Concomitant]
     Active Substance: DOLUTEGRAVIR
     Indication: HIV infection
     Route: 065

REACTIONS (2)
  - Cerebral toxoplasmosis [Fatal]
  - Product use in unapproved indication [Unknown]
